FAERS Safety Report 4928265-8 (Version None)
Quarter: 2006Q1

REPORT INFORMATION
  Report Type: 
  Country: None (occurrence: None)
  Receive Date: 20060223
  Receipt Date: 20060209
  Transmission Date: 20060701
  Serious: Yes (Hospitalization)
  Sender: FDA-Public Use
  Company Number: 2006P1000104

PATIENT
  Age: 58 Year
  Sex: Male

DRUGS (1)
  1. RETEVASE [Suspect]
     Indication: DEEP VEIN THROMBOSIS
     Dosage: IV
     Route: 042
     Dates: start: 20060208, end: 20060208

REACTIONS (2)
  - HAEMATOLOGY TEST ABNORMAL [None]
  - HAEMOLYSIS [None]
